FAERS Safety Report 17556567 (Version 1)
Quarter: 2020Q1

REPORT INFORMATION
  Report Type: Report from Study
  Country: US (occurrence: US)
  Receive Date: 20200318
  Receipt Date: 20200318
  Transmission Date: 20200409
  Serious: Yes (Other)
  Sender: FDA-Public Use
  Company Number: US-PFIZER INC-2019465966

PATIENT
  Age: 50 Year
  Sex: Male

DRUGS (3)
  1. SUTENT [Suspect]
     Active Substance: SUNITINIB MALATE
     Dosage: 37.5 MG, CYCLIC [CYCLE: 2 WEEKS ON, 1 WEEK OFF. ]
     Route: 048
     Dates: start: 20190924
  2. SUTENT [Suspect]
     Active Substance: SUNITINIB MALATE
     Indication: RENAL CELL CARCINOMA
     Dosage: 50 MG, CYCLIC (FOR 2 WEEKS)
     Dates: start: 20190924
  3. SUTENT [Suspect]
     Active Substance: SUNITINIB MALATE
     Dosage: 37.5 MG, CYCLIC ( 4 WEEKS ON AND 2 WEEKS OFF.)
     Route: 048
     Dates: start: 20191018

REACTIONS (17)
  - Neuropathy peripheral [Unknown]
  - Stomatitis [Recovered/Resolved]
  - Taste disorder [Unknown]
  - Nausea [Unknown]
  - Abdominal discomfort [Unknown]
  - Dyspepsia [Unknown]
  - Dehydration [Unknown]
  - Weight decreased [Unknown]
  - Chills [Unknown]
  - Night sweats [Unknown]
  - Pain [Unknown]
  - Diarrhoea [Unknown]
  - Blood glucose increased [Unknown]
  - Rash [Recovered/Resolved]
  - Insomnia [Recovered/Resolved]
  - Fatigue [Unknown]
  - Flatulence [Unknown]
